FAERS Safety Report 10504841 (Version 2)
Quarter: 2014Q4

REPORT INFORMATION
  Report Type: Spontaneous
  Country: US (occurrence: US)
  Receive Date: 20141008
  Receipt Date: 20141205
  Transmission Date: 20150528
  Serious: Yes (Hospitalization, Other)
  Sender: FDA-Public Use
  Company Number: US-ABBVIE-14P-163-1289710-00

PATIENT
  Age: 63 Year
  Sex: Male

DRUGS (2)
  1. ANDROGEL [Suspect]
     Active Substance: TESTOSTERONE
     Indication: BLOOD TESTOSTERONE DECREASED
     Route: 061
     Dates: start: 200511, end: 2014
  2. DEPO TESTOSTERONE [Suspect]
     Active Substance: TESTOSTERONE
     Indication: BLOOD TESTOSTERONE DECREASED
     Route: 065
     Dates: start: 200511, end: 2014

REACTIONS (7)
  - Deep vein thrombosis [Unknown]
  - Anhedonia [Unknown]
  - Fear [Unknown]
  - Thrombosis [Unknown]
  - Economic problem [Unknown]
  - Lung disorder [Unknown]
  - Social problem [Unknown]

NARRATIVE: CASE EVENT DATE: 201210
